FAERS Safety Report 12525915 (Version 1)
Quarter: 2016Q3

REPORT INFORMATION
  Report Type: Spontaneous
  Country: GB (occurrence: GB)
  Receive Date: 20160705
  Receipt Date: 20160705
  Transmission Date: 20161109
  Serious: Yes (Other)
  Sender: FDA-Public Use
  Company Number: GB-ACCORD-042006

PATIENT
  Age: 48 Year
  Sex: Female

DRUGS (9)
  1. PACLITAXEL/PACLITAXEL LIPOSOME [Suspect]
     Active Substance: PACLITAXEL
     Indication: PRODUCT USED FOR UNKNOWN INDICATION
     Route: 065
  2. CAPECITABINE. [Concomitant]
     Active Substance: CAPECITABINE
  3. EVEROLIMUS [Concomitant]
     Active Substance: EVEROLIMUS
  4. ZOLADEX [Concomitant]
     Active Substance: GOSERELIN ACETATE
  5. PROLIA [Suspect]
     Active Substance: DENOSUMAB
     Indication: PRODUCT USED FOR UNKNOWN INDICATION
     Route: 065
  6. EXEMESTANE. [Concomitant]
     Active Substance: EXEMESTANE
  7. TAMOXIFEN [Concomitant]
     Active Substance: TAMOXIFEN
  8. ZOLEDRONIC ACID [Concomitant]
     Active Substance: ZOLEDRONIC ACID
  9. LETROZOLE. [Concomitant]
     Active Substance: LETROZOLE

REACTIONS (11)
  - Breast cancer female [Unknown]
  - Pericardial effusion [Unknown]
  - Disease progression [Unknown]
  - Cough [Unknown]
  - Lymphadenopathy mediastinal [Unknown]
  - Metastases to bone [Unknown]
  - Metastases to lymph nodes [Unknown]
  - Bone disorder [Unknown]
  - Pleural effusion [Unknown]
  - Pneumonitis [Unknown]
  - Recurrent cancer [None]

NARRATIVE: CASE EVENT DATE: 201302
